FAERS Safety Report 12052249 (Version 2)
Quarter: 2016Q1

REPORT INFORMATION
  Report Type: Spontaneous
  Country: US (occurrence: US)
  Receive Date: 20160209
  Receipt Date: 20160316
  Transmission Date: 20160526
  Serious: Yes (Death, Hospitalization)
  Sender: FDA-Public Use
  Company Number: US-UNITED THERAPEUTICS-UNT-2016-000898

PATIENT
  Age: 68 Year
  Sex: Female
  Weight: 54.88 kg

DRUGS (4)
  1. LETAIRIS [Suspect]
     Active Substance: AMBRISENTAN
     Indication: PULMONARY ARTERIAL HYPERTENSION
     Dosage: 10 MG, QD
     Route: 065
     Dates: start: 20100603
  2. ADEMPAS [Suspect]
     Active Substance: RIOCIGUAT
     Indication: PRODUCT USED FOR UNKNOWN INDICATION
     Route: 065
  3. REMODULIN [Suspect]
     Active Substance: TREPROSTINIL
     Indication: PULMONARY HYPERTENSION
     Dosage: 0.011 ?G/KG, CONTINUING
     Route: 041
     Dates: start: 20160120
  4. REMODULIN [Suspect]
     Active Substance: TREPROSTINIL
     Dosage: 0.010 ?G/KG, CONTINUING
     Route: 041

REACTIONS (8)
  - Vomiting [Unknown]
  - Fall [Unknown]
  - Rales [Unknown]
  - Coma [Fatal]
  - Cerebral haemorrhage [Fatal]
  - Head injury [Fatal]
  - Nausea [Unknown]
  - Hypotension [Unknown]

NARRATIVE: CASE EVENT DATE: 201601
